FAERS Safety Report 7725662-2 (Version None)
Quarter: 2011Q3

REPORT INFORMATION
  Report Type: 
  Country: None (occurrence: None)
  Receive Date: 20110902
  Receipt Date: 20110818
  Transmission Date: 20111222
  Serious: Yes (Life-Threatening, Hospitalization, Other)
  Sender: FDA-Public Use
  Company Number: PHHY2011CA67403

PATIENT
  Sex: Female

DRUGS (9)
  1. ASPIRIN [Concomitant]
     Dosage: UNK UKN, UNK
  2. MINITRAN [Concomitant]
     Dosage: UNK UKN, UNK
  3. CALCIUM CARBONATE [Concomitant]
     Dosage: UNK UKN, UNK
  4. ZOLEDRONOC ACID [Suspect]
     Dosage: UNK UKN, UNK
     Route: 042
     Dates: start: 20100816
  5. PREVACID [Concomitant]
     Dosage: UNK UKN, UNK
  6. TIAZAC [Concomitant]
     Dosage: UNK UKN, UNK
  7. ZOLEDRONOC ACID [Suspect]
     Indication: OSTEOPOROSIS
     Dates: start: 20100618
  8. ATACAND [Concomitant]
     Dosage: UNK UKN, UNK
  9. VITAMIN D [Concomitant]
     Dosage: UNK UKN, UNK

REACTIONS (4)
  - POST PROCEDURAL HAEMORRHAGE [None]
  - RENAL CANCER [None]
  - SQUAMOUS CELL CARCINOMA [None]
  - INFLUENZA [None]
